FAERS Safety Report 21608603 (Version 2)
Quarter: 2022Q4

REPORT INFORMATION
  Report Type: Spontaneous
  Country: US (occurrence: US)
  Receive Date: 20221117
  Receipt Date: 20221224
  Transmission Date: 20230112
  Serious: Yes (Other)
  Sender: FDA-Public Use
  Company Number: US-JNJFOC-20221126183

PATIENT
  Sex: Female

DRUGS (1)
  1. RISPERDAL [Suspect]
     Active Substance: RISPERIDONE
     Indication: Product used for unknown indication
     Route: 065

REACTIONS (10)
  - Suicidal ideation [Unknown]
  - Hallucination [Unknown]
  - Choking [Unknown]
  - Anaphylactic reaction [Unknown]
  - Insomnia [Unknown]
  - Paranoia [Unknown]
  - Abnormal loss of weight [Unknown]
  - Foaming at mouth [Unknown]
  - Dysgeusia [Unknown]
  - Therapy cessation [Unknown]
